FAERS Safety Report 25399091 (Version 1)
Quarter: 2025Q2

REPORT INFORMATION
  Report Type: Report from Study
  Country: IN (occurrence: IN)
  Receive Date: 20250605
  Receipt Date: 20250605
  Transmission Date: 20250717
  Serious: Yes (Hospitalization, Other)
  Sender: ALEXION PHARMACEUTICALS
  Company Number: IN-AstraZeneca-CH-00882104A

PATIENT

DRUGS (1)
  1. DURVALUMAB [Suspect]
     Active Substance: DURVALUMAB
     Indication: Biliary cancer metastatic
     Dosage: 1500 MILLIGRAM, Q3W

REACTIONS (6)
  - Oxygen saturation decreased [Unknown]
  - Blood pressure decreased [Unknown]
  - Unresponsive to stimuli [Unknown]
  - Pulmonary congestion [Unknown]
  - Cough [Unknown]
  - Hypophagia [Unknown]
